FAERS Safety Report 7293764-3 (Version None)
Quarter: 2011Q1

REPORT INFORMATION
  Report Type: 
  Country: None (occurrence: None)
  Receive Date: 20110203
  Receipt Date: 20110118
  Transmission Date: 20110831
  Serious: Yes (Death)
  Sender: FDA-Public Use
  Company Number: B0694992A

PATIENT
  Age: 80 Year
  Sex: Male

DRUGS (5)
  1. ALPRAZOLAM [Suspect]
     Dosage: ORAL
     Route: 048
  2. ENALAPRIL MALEATE [Suspect]
     Dosage: ORAL
     Route: 048
  3. PAROXETINE HYDROCHLORIDE (FORMULATION UNKNOWN) (GENERIC) (PAROXETINE H [Suspect]
     Dosage: ORAL
     Route: 048
  4. LOVASTATIN (FORMULATION UNKNOWN) (LOVASTATIN) [Suspect]
     Dosage: ORAL
     Route: 048
  5. AMLODIPINE [Suspect]
     Dosage: ORAL
     Route: 048

REACTIONS (1)
  - COMPLETED SUICIDE [None]
